FAERS Safety Report 8967075 (Version 1)
Quarter: 2012Q4

REPORT INFORMATION
  Report Type: 
  Country: US (occurrence: US)
  Receive Date: 20121214
  Receipt Date: 20121214
  Transmission Date: 20130627
  Serious: Yes (Other)
  Sender: FDA-Public Use
  Company Number: US-US-EMD SERONO, INC.-7182256

PATIENT
  Sex: Female

DRUGS (1)
  1. REBIF [Suspect]
     Indication: MULTIPLE SCLEROSIS
     Route: 058
     Dates: start: 20110524, end: 201211

REACTIONS (4)
  - Sarcoidosis [Recovering/Resolving]
  - Asthma [Unknown]
  - Ocular icterus [Unknown]
  - Hypersomnia [Unknown]
